FAERS Safety Report 16361025 (Version 1)
Quarter: 2019Q2

REPORT INFORMATION
  Report Type: Spontaneous
  Country: US (occurrence: US)
  Receive Date: 20190528
  Receipt Date: 20190528
  Transmission Date: 20190711
  Serious: Yes (Death, Hospitalization, Other)
  Sender: FDA-Public Use
  Company Number: US-CONCORDIA PHARMACEUTICALS INC.-GSH201905-001477

PATIENT
  Age: 36 Year
  Sex: Female

DRUGS (12)
  1. METHOTREXATE. [Suspect]
     Active Substance: METHOTREXATE
     Indication: RHEUMATOID ARTHRITIS
     Route: 065
     Dates: start: 1994, end: 2001
  2. PREDNISONE. [Suspect]
     Active Substance: PREDNISONE
     Indication: RHEUMATOID ARTHRITIS
     Route: 065
     Dates: start: 1994, end: 2001
  3. METHOTREXATE. [Suspect]
     Active Substance: METHOTREXATE
     Route: 065
     Dates: start: 2002
  4. PREDNISONE. [Suspect]
     Active Substance: PREDNISONE
     Route: 065
     Dates: start: 2004
  5. ETODOLAC. [Suspect]
     Active Substance: ETODOLAC
     Indication: RHEUMATOID ARTHRITIS
     Route: 065
     Dates: start: 1994, end: 2001
  6. ADALIMUMAB [Suspect]
     Active Substance: ADALIMUMAB
     Indication: RHEUMATOID ARTHRITIS
     Route: 065
     Dates: start: 2004, end: 2006
  7. ADALIMUMAB [Suspect]
     Active Substance: ADALIMUMAB
     Dosage: ADALIMUMAB THERAPY WAS INTERRUPTED FOR SEVERAL MONTHS IN LATE 2006
     Route: 065
  8. AZATHIOPRINE. [Suspect]
     Active Substance: AZATHIOPRINE
     Indication: RHEUMATOID ARTHRITIS
     Route: 065
     Dates: start: 1994, end: 2001
  9. HYDROXYCHLOROQUINE [Suspect]
     Active Substance: HYDROXYCHLOROQUINE
     Indication: RHEUMATOID ARTHRITIS
     Route: 065
     Dates: start: 1992
  10. ETANERCEPT [Suspect]
     Active Substance: ETANERCEPT
     Indication: RHEUMATOID ARTHRITIS
     Route: 065
     Dates: start: 2002
  11. CORTISONE [Suspect]
     Active Substance: CORTISONE\HYDROCORTISONE
     Indication: RHEUMATOID ARTHRITIS
     Route: 065
  12. METHOTREXATE. [Suspect]
     Active Substance: METHOTREXATE
     Route: 065
     Dates: start: 2004

REACTIONS (19)
  - Respiratory distress [Fatal]
  - Abdominal pain upper [Unknown]
  - Headache [Unknown]
  - Haemodynamic instability [Unknown]
  - Histoplasmosis disseminated [Fatal]
  - Pyrexia [Unknown]
  - Chills [Unknown]
  - Jaundice [Unknown]
  - Fatigue [Unknown]
  - Retroperitoneal haemorrhage [Fatal]
  - Vomiting [Unknown]
  - Hypotension [Unknown]
  - Diarrhoea [Unknown]
  - Nausea [Unknown]
  - Herpes simplex [Unknown]
  - Candida infection [Unknown]
  - Acute kidney injury [Fatal]
  - Abdominal distension [Unknown]
  - Ocular icterus [Unknown]

NARRATIVE: CASE EVENT DATE: 20070702
